FAERS Safety Report 4862929-X (Version None)
Quarter: 2005Q4

REPORT INFORMATION
  Report Type: 
  Country: None (occurrence: None)
  Receive Date: 20051221
  Receipt Date: 20051116
  Transmission Date: 20060501
  Serious: Yes (Hospitalization)
  Sender: FDA-Public Use
  Company Number: JP-ABBOTT-05P-087-0317687-00

PATIENT
  Sex: Female
  Weight: 57.2 kg

DRUGS (11)
  1. KLARICID [Suspect]
     Indication: HELICOBACTER INFECTION
     Route: 048
     Dates: start: 20051107, end: 20051113
  2. GLIBENCLAMIDE [Suspect]
     Indication: DIABETES MELLITUS
     Route: 048
     Dates: start: 20020509, end: 20051109
  3. GLIBENCLAMIDE [Suspect]
     Route: 048
     Dates: start: 20051114
  4. BUFORMIN HYDROCHLORIDE [Concomitant]
     Indication: DIABETES MELLITUS
     Route: 048
     Dates: start: 20020509, end: 20051109
  5. BUFORMIN HYDROCHLORIDE [Concomitant]
     Route: 048
     Dates: start: 20051114
  6. IMIDAPRIL HYDROCHLORIDE [Concomitant]
     Indication: HYPERTENSION
     Route: 048
     Dates: start: 20020509
  7. AMBROXOL HYDROCHLORIDE [Concomitant]
     Indication: BRONCHITIS CHRONIC
     Route: 048
     Dates: start: 20050225
  8. DEXTROMETHORPHAN HYDROBROMIDE [Concomitant]
     Indication: BRONCHITIS CHRONIC
     Dosage: UID
     Route: 048
     Dates: start: 20031003
  9. OMEPRAZOLE [Concomitant]
     Indication: HELICOBACTER INFECTION
     Route: 048
     Dates: start: 20051107, end: 20051113
  10. AMOXICILLIN [Concomitant]
     Indication: HELICOBACTER INFECTION
     Route: 048
     Dates: start: 20051107, end: 20051113
  11. SENNOSIDE A [Concomitant]
     Indication: CONSTIPATION
     Route: 048
     Dates: start: 20020309

REACTIONS (4)
  - CHILLS [None]
  - DEPRESSED LEVEL OF CONSCIOUSNESS [None]
  - DRUG INTERACTION [None]
  - HYPOGLYCAEMIA [None]
